FAERS Safety Report 20291544 (Version 1)
Quarter: 2022Q1

REPORT INFORMATION
  Report Type: Spontaneous
  Country: CN (occurrence: CN)
  Receive Date: 20220104
  Receipt Date: 20220104
  Transmission Date: 20220423
  Serious: Yes (Hospitalization)
  Sender: FDA-Public Use
  Company Number: CN-AstraZeneca-2021A889468

PATIENT
  Sex: Female
  Weight: 70 kg

DRUGS (10)
  1. LINACLOTIDE [Suspect]
     Active Substance: LINACLOTIDE
     Indication: Gastric disorder
     Dosage: 290 UG, QD
     Route: 048
     Dates: start: 20211112, end: 20211202
  2. LINACLOTIDE [Suspect]
     Active Substance: LINACLOTIDE
     Indication: Constipation
  3. LINACLOTIDE [Suspect]
     Active Substance: LINACLOTIDE
     Indication: Dyspepsia
  4. LINACLOTIDE [Suspect]
     Active Substance: LINACLOTIDE
     Indication: Decreased appetite
  5. LIVE COMBINED BIFIDOBACTERIUM,LACTOBACILLUS AND ENTEROCOCCUS [Concomitant]
     Dosage: 210 MG, QD
     Route: 048
     Dates: start: 20211112, end: 20211202
  6. ESOMEPRAZOLE MAGNESIUM [Concomitant]
     Active Substance: ESOMEPRAZOLE MAGNESIUM
     Dosage: 20 MG, QD
     Route: 048
     Dates: start: 20211112, end: 20211202
  7. FENGLIAO CHANGWEIKANG [Concomitant]
     Indication: Gastric disorder
     Dosage: 1 TABLET THREE TIMES DAY
     Route: 065
     Dates: start: 20211112, end: 20211202
  8. FENGLIAO CHANGWEIKANG [Concomitant]
     Indication: Dyspepsia
  9. FENGLIAO CHANGWEIKANG [Concomitant]
     Indication: Decreased appetite
  10. FENGLIAO CHANGWEIKANG [Concomitant]
     Indication: Constipation

REACTIONS (4)
  - Pruritus [Recovering/Resolving]
  - Drug eruption [Recovering/Resolving]
  - Rash [Recovering/Resolving]
  - Off label use [Unknown]

NARRATIVE: CASE EVENT DATE: 20211112
